FAERS Safety Report 19062063 (Version 1)
Quarter: 2021Q1

REPORT INFORMATION
  Report Type: Spontaneous
  Country: US (occurrence: US)
  Receive Date: 20210326
  Receipt Date: 20210326
  Transmission Date: 20210420
  Serious: Yes (Hospitalization, Other)
  Sender: FDA-Public Use
  Company Number: US-AUROBINDO-AUR-APL-2021-011283

PATIENT
  Age: 22 Year
  Sex: Male

DRUGS (2)
  1. SERTRALINE [Concomitant]
     Active Substance: SERTRALINE HYDROCHLORIDE
     Indication: DEPRESSION
     Dosage: UNK
     Route: 065
  2. LOPERAMIDE [Suspect]
     Active Substance: LOPERAMIDE
     Indication: ANXIETY
     Dosage: 600 MILLIGRAM (2?3 TIMES WEEKLY)
     Route: 065

REACTIONS (10)
  - Ventricular tachycardia [Unknown]
  - Intentional product misuse [Unknown]
  - Electrocardiogram abnormal [Unknown]
  - Electrocardiogram QT prolonged [Unknown]
  - Electrocardiogram QRS complex prolonged [Unknown]
  - Syncope [Unknown]
  - Loss of consciousness [Unknown]
  - Overdose [Unknown]
  - Torsade de pointes [Unknown]
  - Product use in unapproved indication [Unknown]
